FAERS Safety Report 7948379-8 (Version None)
Quarter: 2011Q4

REPORT INFORMATION
  Report Type: 
  Country: None (occurrence: None)
  Receive Date: 20111130
  Receipt Date: 20111121
  Transmission Date: 20120403
  Serious: Yes (Other)
  Sender: FDA-Public Use
  Company Number: US-BAYER-201037249NA

PATIENT
  Age: 26 Year
  Sex: Female
  Weight: 90 kg

DRUGS (4)
  1. YAZ [Suspect]
     Indication: CONTRACEPTION
     Dosage: UNK
     Route: 048
     Dates: start: 20090501, end: 20100201
  2. HYDROCODONE BITARTRATE AND ACETAMINOPHEN [Concomitant]
     Dosage: 7.5 MG / 500 MG
     Route: 048
     Dates: start: 20090811
  3. RANITIDINE [Concomitant]
     Dosage: 150 MG, UNK
     Route: 048
     Dates: start: 20091010
  4. ANTI-ACNE PREPARATIONS FOR TOPICAL USE [Concomitant]
     Indication: ACNE
     Dosage: 4/1
     Dates: start: 20091012

REACTIONS (9)
  - FLATULENCE [None]
  - DYSPEPSIA [None]
  - DEPRESSION [None]
  - CHOLECYSTITIS CHRONIC [None]
  - CONSTIPATION [None]
  - CHOLELITHIASIS [None]
  - DIARRHOEA [None]
  - ANXIETY [None]
  - ABDOMINAL DISTENSION [None]
